FAERS Safety Report 12394788 (Version 1)
Quarter: 2016Q2

REPORT INFORMATION
  Report Type: Spontaneous
  Country: FR (occurrence: FR)
  Receive Date: 20160523
  Receipt Date: 20160523
  Transmission Date: 20160815
  Serious: Yes (Hospitalization)
  Sender: FDA-Public Use
  Company Number: FR-TEVA-660438ISR

PATIENT
  Age: 68 Year
  Sex: Male

DRUGS (6)
  1. METHOTREXATE (METHOTREXATE SODIUM) [Suspect]
     Active Substance: METHOTREXATE SODIUM
     Indication: BLADDER CANCER
     Dosage: 4TH COURSES OF M-VAC PROTOCOL
     Route: 042
     Dates: start: 20150514, end: 20150806
  2. KARDEGIC [Concomitant]
     Active Substance: ASPIRIN LYSINE
  3. DOXORUBICINE TEVA [Suspect]
     Active Substance: DOXORUBICIN
     Indication: BLADDER CANCER
     Dosage: 4TH COURSES OF M-VAC PROTOCOL (METHOTREXATE, VINBLASTINE, DOXORUBICIN,CIPLATINE)
     Route: 042
     Dates: start: 20150514, end: 20150806
  4. VELBE [Suspect]
     Active Substance: VINBLASTINE SULFATE
     Indication: BLADDER CANCER
     Dosage: 4TH COURSES OF M-VAC PROTOCOL
     Route: 042
     Dates: start: 20150514, end: 20150806
  5. CISPLATINE ACCORD [Suspect]
     Active Substance: CISPLATIN
     Indication: BLADDER CANCER
     Dosage: 4TH COURSES OF M-VAC PROTOCOL
     Route: 042
     Dates: start: 20150514, end: 20150806
  6. DIFFU K [Concomitant]
     Active Substance: POTASSIUM CHLORIDE

REACTIONS (6)
  - General physical health deterioration [Unknown]
  - Thrombocytopenia [Recovered/Resolved]
  - Anaemia [Unknown]
  - Dehydration [Unknown]
  - Febrile neutropenia [Recovered/Resolved]
  - Pyrexia [Unknown]

NARRATIVE: CASE EVENT DATE: 20150814
